FAERS Safety Report 5036598-2 (Version None)
Quarter: 2006Q2

REPORT INFORMATION
  Report Type: 
  Country: None (occurrence: None)
  Receive Date: 20060531
  Receipt Date: 20060331
  Transmission Date: 20061013
  Serious: No
  Sender: FDA-Public Use
  Company Number: PHEH2006US04309

PATIENT
  Age: 80 Year
  Sex: Male

DRUGS (1)
  1. EXJADE [Suspect]
     Dosage: 1500 MG, QD
     Dates: start: 20060210, end: 20060327

REACTIONS (3)
  - DERMATITIS ALLERGIC [None]
  - RASH MACULO-PAPULAR [None]
  - SWELLING FACE [None]
